FAERS Safety Report 5074981-X (Version None)
Quarter: 2006Q3

REPORT INFORMATION
  Report Type: 
  Country: None (occurrence: None)
  Receive Date: 20060809
  Receipt Date: 20060728
  Transmission Date: 20061208
  Serious: Yes (Disabling, Other)
  Sender: FDA-Public Use
  Company Number: JP-BRISTOL-MYERS SQUIBB COMPANY-13465869

PATIENT
  Age: 5 Decade
  Sex: Female

DRUGS (8)
  1. EFAVIRENZ [Suspect]
     Indication: HIV INFECTION
     Route: 048
     Dates: start: 20010410
  2. ZERIT [Suspect]
     Indication: HIV INFECTION
     Route: 048
     Dates: start: 20010410, end: 20051030
  3. EPIVIR [Suspect]
     Indication: HIV INFECTION
     Route: 048
     Dates: start: 20051031
  4. ZIAGEN [Suspect]
     Indication: HIV INFECTION
     Route: 048
     Dates: start: 20010410
  5. AMLODIN [Concomitant]
  6. BUFFERIN [Concomitant]
  7. DIOVAN [Concomitant]
  8. TOLEDOMIN [Concomitant]

REACTIONS (4)
  - CEREBRAL INFARCTION [None]
  - DEPRESSION [None]
  - HEMIPARESIS [None]
  - HYPERTENSION [None]
